FAERS Safety Report 8475953-5 (Version None)
Quarter: 2012Q2

REPORT INFORMATION
  Report Type: 
  Country: None (occurrence: None)
  Receive Date: 20120628
  Receipt Date: 20120620
  Transmission Date: 20120825
  Serious: No
  Sender: FDA-Public Use
  Company Number: US-ASTRAZENECA-2012SE41750

PATIENT
  Age: 57 Year
  Sex: Female

DRUGS (3)
  1. NEXIUM [Suspect]
     Route: 048
  2. SYMBICORT [Suspect]
     Route: 055
  3. CRESTOR [Suspect]
     Route: 048

REACTIONS (4)
  - DYSPHONIA [None]
  - SINUSITIS [None]
  - RHINORRHOEA [None]
  - COUGH [None]
